FAERS Safety Report 23111800 (Version 1)
Quarter: 2023Q4

REPORT INFORMATION
  Report Type: Spontaneous
  Country: US (occurrence: US)
  Receive Date: 20231026
  Receipt Date: 20231026
  Transmission Date: 20240110
  Serious: Yes (Life-Threatening)
  Sender: FDA-Public Use
  Company Number: US-DASHPHARMA-2023-US-034747

PATIENT
  Age: 34 Year
  Sex: Male

DRUGS (1)
  1. TESTOSTERONE [Suspect]
     Active Substance: TESTOSTERONE
     Indication: Muscle building therapy
     Dosage: UNKNOWN
     Route: 065

REACTIONS (2)
  - Coronary artery dissection [Recovered/Resolved]
  - Thrombocytosis [Unknown]
